FAERS Safety Report 8667237 (Version 2)
Quarter: 2012Q4

REPORT INFORMATION
  Report Type: 
  Country: US (occurrence: US)
  Receive Date: 20120717
  Receipt Date: 20120904
  Transmission Date: 20130627
  Serious: No
  Sender: FDA-Public Use
  Company Number: US-PFIZER INC-2012169429

PATIENT
  Age: 71 Year
  Sex: Female
  Weight: 68.03 kg

DRUGS (6)
  1. LYRICA [Suspect]
     Indication: SPINAL COLUMN STENOSIS
     Dosage: 50 mg, daily
     Route: 048
     Dates: start: 20120618, end: 20120622
  2. LYRICA [Suspect]
     Indication: NEURALGIA
  3. TRAMADOL HYDROCHLORIDE [Suspect]
     Indication: SPINAL COLUMN STENOSIS
     Dosage: 50 mg, 3x/day
     Dates: start: 20120604, end: 20120607
  4. TRAMADOL HYDROCHLORIDE [Suspect]
     Indication: NEURALGIA
  5. IBUPROFEN [Suspect]
     Indication: SPINAL COLUMN STENOSIS
     Dosage: UNK, 3x/day
     Dates: start: 20120605, end: 20120607
  6. IBUPROFEN [Suspect]
     Indication: NEURALGIA

REACTIONS (2)
  - Drug ineffective [Unknown]
  - Vision blurred [Recovering/Resolving]
